FAERS Safety Report 4384982-2 (Version None)
Quarter: 2004Q2

REPORT INFORMATION
  Report Type: 
  Country: None (occurrence: None)
  Receive Date: 20040623
  Receipt Date: 20040623
  Transmission Date: 20050107
  Serious: Yes (Hospitalization)
  Sender: FDA-Public Use
  Company Number: None

PATIENT
  Age: 84 Year
  Sex: Male

DRUGS (5)
  1. WARFARIN SODIUM [Suspect]
  2. BACTRIM [Suspect]
  3. KEPPRA [Concomitant]
  4. LASIX [Concomitant]
  5. GEMFIBROZIL [Concomitant]

REACTIONS (1)
  - HAEMOPTYSIS [None]
